FAERS Safety Report 20614036 (Version 1)
Quarter: 2022Q1

REPORT INFORMATION
  Report Type: Other
  Country: US (occurrence: None)
  Receive Date: 20220319
  Receipt Date: 20220319
  Transmission Date: 20220423
  Serious: No
  Sender: FDA-Public Use
  Company Number: US-ROCHE-3051851

PATIENT
  Sex: Female

DRUGS (9)
  1. OCREVUS [Suspect]
     Active Substance: OCRELIZUMAB
     Indication: Multiple sclerosis
     Dosage: UNKNOWN
     Route: 065
  2. ALPHA LIPOIC ACID [Concomitant]
     Active Substance: .ALPHA.-LIPOIC ACID
  3. ATIVAN [Concomitant]
     Active Substance: LORAZEPAM
  4. AUBAGIO [Concomitant]
     Active Substance: TERIFLUNOMIDE
  5. CO Q 100 [Concomitant]
  6. DIAZEPAM [Concomitant]
     Active Substance: DIAZEPAM
  7. FISH OIL [Concomitant]
     Active Substance: FISH OIL
  8. LYRICA [Concomitant]
     Active Substance: PREGABALIN
  9. VITAMIN D3 [Concomitant]
     Active Substance: CHOLECALCIFEROL

REACTIONS (1)
  - COVID-19 [Unknown]
